FAERS Safety Report 5520309-8 (Version None)
Quarter: 2007Q4

REPORT INFORMATION
  Report Type: 
  Country: None (occurrence: None)
  Receive Date: 20071119
  Receipt Date: 20071114
  Transmission Date: 20080405
  Serious: Yes (Hospitalization)
  Sender: FDA-Public Use
  Company Number: AU-BRISTOL-MYERS SQUIBB COMPANY-13981782

PATIENT
  Age: 66 Year
  Sex: Male

DRUGS (10)
  1. PRAVACHOL [Suspect]
     Indication: METABOLIC DISORDER
     Dates: end: 20051223
  2. ACTOS [Suspect]
     Route: 048
     Dates: start: 20051206, end: 20060115
  3. MICARDIS [Suspect]
  4. EZETROL [Suspect]
     Indication: DIABETES MELLITUS
     Dates: start: 20051107, end: 20051223
  5. LIPIDIL [Suspect]
     Indication: METABOLIC DISORDER
     Dates: start: 20051117, end: 20051223
  6. AVANDIA [Suspect]
     Indication: DIABETES MELLITUS
     Dates: start: 20051210
  7. RAMIPRIL [Concomitant]
  8. IODIZED OIL [Concomitant]
  9. AMARYL [Concomitant]
  10. METFORMIN HCL [Concomitant]

REACTIONS (9)
  - ANAEMIA [None]
  - BLOOD BILIRUBIN INCREASED [None]
  - BLOOD CHOLESTEROL INCREASED [None]
  - BLOOD LACTATE DEHYDROGENASE INCREASED [None]
  - DECREASED APPETITE [None]
  - HEPATIC FAILURE [None]
  - LIVER FUNCTION TEST ABNORMAL [None]
  - NAUSEA [None]
  - WEIGHT DECREASED [None]
